FAERS Safety Report 20430363 (Version 1)
Quarter: 2022Q1

REPORT INFORMATION
  Report Type: Spontaneous
  Country: US (occurrence: None)
  Receive Date: 20220203
  Receipt Date: 20220203
  Transmission Date: 20220423
  Serious: Yes (Disabling)
  Sender: FDA-Public Use
  Company Number: None

PATIENT
  Age: 19 Year
  Sex: Female
  Weight: 40.5 kg

DRUGS (2)
  1. METRONIDAZOLE [Suspect]
     Active Substance: METRONIDAZOLE
     Indication: Trichomoniasis
  2. DOXYCYCLINE [Suspect]
     Active Substance: DOXYCYCLINE
     Indication: Chlamydial infection

REACTIONS (6)
  - Malaise [None]
  - Vomiting [None]
  - Impaired work ability [None]
  - Loss of personal independence in daily activities [None]
  - Tendonitis [None]
  - Economic problem [None]

NARRATIVE: CASE EVENT DATE: 20211203
